FAERS Safety Report 16175122 (Version 1)
Quarter: 2019Q2

REPORT INFORMATION
  Report Type: Spontaneous
  Country: US (occurrence: US)
  Receive Date: 20190409
  Receipt Date: 20190409
  Transmission Date: 20190711
  Serious: Yes (Hospitalization, Other)
  Sender: FDA-Public Use
  Company Number: US-APOTEX-2019AP010906

PATIENT
  Age: 91 Year
  Sex: Female

DRUGS (1)
  1. CALCITONIN SALMON. [Suspect]
     Active Substance: CALCITONIN SALMON
     Indication: OSTEOPOROSIS
     Route: 065

REACTIONS (8)
  - Pneumonia [Unknown]
  - Scab [Unknown]
  - Arthralgia [Unknown]
  - Back pain [Unknown]
  - Nasal crusting [Recovering/Resolving]
  - Stomatitis [Unknown]
  - Headache [Unknown]
  - Nasal discomfort [Recovering/Resolving]
